FAERS Safety Report 22147554 (Version 6)
Quarter: 2023Q2

REPORT INFORMATION
  Report Type: Report from Study
  Country: CA (occurrence: CA)
  Receive Date: 20230328
  Receipt Date: 20230601
  Transmission Date: 20230722
  Serious: Yes (Death, Hospitalization, Other)
  Sender: FDA-Public Use
  Company Number: CA-TAKEDA-2023TUS000360

PATIENT
  Age: 56 Year
  Sex: Female

DRUGS (4)
  1. VEDOLIZUMAB [Suspect]
     Active Substance: VEDOLIZUMAB
     Indication: Crohn^s disease
     Dosage: 300 MILLIGRAM
     Route: 042
     Dates: start: 20160712
  2. FENTANYL [Concomitant]
     Active Substance: FENTANYL
     Dosage: 25 MICROGRAM
  3. DILAUDID [Concomitant]
     Active Substance: HYDROMORPHONE HYDROCHLORIDE
     Dosage: UNK UNK, BID
  4. VENLAFAXINE [Concomitant]
     Active Substance: VENLAFAXINE HYDROCHLORIDE
     Indication: Menopause
     Dosage: 37.5 MILLIGRAM, QD
     Route: 048

REACTIONS (3)
  - Death [Fatal]
  - Crohn^s disease [Not Recovered/Not Resolved]
  - Respiratory tract infection [Unknown]
